FAERS Safety Report 17504023 (Version 1)
Quarter: 2020Q1

REPORT INFORMATION
  Report Type: Spontaneous
  Country: US (occurrence: US)
  Receive Date: 20200305
  Receipt Date: 20200305
  Transmission Date: 20200409
  Serious: No
  Sender: FDA-Public Use
  Company Number: US-ROCHE-2240015

PATIENT
  Sex: Female
  Weight: 88.53 kg

DRUGS (29)
  1. XOLAIR [Suspect]
     Active Substance: OMALIZUMAB
     Dosage: ONGOING:NO ;ONE 75 MG INJECTION IN EACH ARM
     Route: 058
     Dates: start: 20180924
  2. ESTRADIOL. [Concomitant]
     Active Substance: ESTRADIOL
     Indication: HORMONE THERAPY
     Route: 048
     Dates: start: 1973
  3. CARVEDILOL. [Concomitant]
     Active Substance: CARVEDILOL
     Route: 048
     Dates: start: 2005
  4. XOLAIR [Suspect]
     Active Substance: OMALIZUMAB
     Dosage: ONGOING:NO ;ONE 75 MG INJECTION IN EACH ARM
     Route: 058
     Dates: start: 20180730
  5. MONTELUKAST [Concomitant]
     Active Substance: MONTELUKAST SODIUM
  6. LATISSE [Concomitant]
     Active Substance: BIMATOPROST
     Route: 061
  7. LOSARTAN. [Concomitant]
     Active Substance: LOSARTAN
     Indication: HYPERTENSION
     Dosage: ONGOING: YES; ONCE IN THE AM
     Route: 048
  8. ZYRTEC [Concomitant]
     Active Substance: CETIRIZINE HYDROCHLORIDE
  9. MOMETASONE FUROATE. [Concomitant]
     Active Substance: MOMETASONE FUROATE
     Dosage: TOPICAL  2 TIMES A DAY TO SCALP
     Route: 061
     Dates: start: 20180503
  10. HYDROCHLOROTHIAZIDE. [Concomitant]
     Active Substance: HYDROCHLOROTHIAZIDE
     Route: 065
  11. XOLAIR [Suspect]
     Active Substance: OMALIZUMAB
     Dosage: ONGOING:NO ;ONE 75 MG INJECTION IN EACH ARM
     Route: 058
     Dates: start: 20180409
  12. XOLAIR [Suspect]
     Active Substance: OMALIZUMAB
     Dosage: ONGOING:NO ;ONE 75 MG INJECTION IN EACH ARM
     Route: 058
     Dates: start: 20180507
  13. XOLAIR [Suspect]
     Active Substance: OMALIZUMAB
     Dosage: ONGOING:NO ;ONE 75 MG INJECTION IN EACH ARM
     Route: 058
     Dates: start: 20180827
  14. ORACEA [Concomitant]
     Active Substance: DOXYCYCLINE
     Route: 048
     Dates: start: 20110906
  15. METROGEL [Concomitant]
     Active Substance: METRONIDAZOLE
     Route: 061
     Dates: start: 20110906
  16. OXISTAT [Concomitant]
     Active Substance: OXICONAZOLE NITRATE
     Route: 061
     Dates: start: 20111027
  17. AMLODIPINE [Concomitant]
     Active Substance: AMLODIPINE BESYLATE
     Indication: HYPERTENSION
     Dosage: ONCE IN THE AM
     Route: 048
     Dates: start: 2017
  18. SINGULAIR [Concomitant]
     Active Substance: MONTELUKAST SODIUM
     Indication: URTICARIA
     Dosage: ONE TABLET AT BEDTIME
     Route: 048
     Dates: start: 2018
  19. TRIAMCINOLONE ACETONIDE. [Concomitant]
     Active Substance: TRIAMCINOLONE ACETONIDE
     Route: 061
     Dates: start: 20180503
  20. RANITIDINE. [Concomitant]
     Active Substance: RANITIDINE
     Dosage: TWO IN THE AM; TWO IN THE PM
     Route: 048
     Dates: start: 2018
  21. XOLAIR [Suspect]
     Active Substance: OMALIZUMAB
     Dosage: ONE 75 MG INJECTION IN EACH ARM
     Route: 058
     Dates: start: 20181219
  22. OXYBUTYNIN. [Concomitant]
     Active Substance: OXYBUTYNIN CHLORIDE
     Indication: URINARY INCONTINENCE
     Route: 048
     Dates: start: 2013
  23. SYNTHROID [Concomitant]
     Active Substance: LEVOTHYROXINE SODIUM
     Indication: HYPOTHYROIDISM
     Route: 048
     Dates: start: 2016
  24. XOLAIR [Suspect]
     Active Substance: OMALIZUMAB
     Indication: URTICARIA
     Dosage: ONGOING:NO ;ONE 75 MG INJECTION IN EACH ARM
     Route: 058
     Dates: start: 20180312
  25. ZANTAC [Concomitant]
     Active Substance: RANITIDINE HYDROCHLORIDE
  26. XOLAIR [Suspect]
     Active Substance: OMALIZUMAB
     Indication: IDIOPATHIC URTICARIA
     Route: 058
  27. XOLAIR [Suspect]
     Active Substance: OMALIZUMAB
     Dosage: ONGOING:NO ;ONE 75 MG INJECTION IN EACH ARM
     Route: 058
     Dates: start: 20180604
  28. XOLAIR [Suspect]
     Active Substance: OMALIZUMAB
     Dosage: ONGOING:NO ;ONE 75 MG INJECTION IN EACH ARM
     Route: 058
     Dates: start: 20180702
  29. ZYRTEC [Concomitant]
     Active Substance: CETIRIZINE HYDROCHLORIDE
     Indication: URTICARIA
     Dosage: ONGOING: YES;TWO IN THE AM; TWO IN THE PM
     Route: 048
     Dates: start: 2018

REACTIONS (2)
  - Lip swelling [Not Recovered/Not Resolved]
  - Mouth swelling [Not Recovered/Not Resolved]
